FAERS Safety Report 4998980-9 (Version None)
Quarter: 2006Q2

REPORT INFORMATION
  Report Type: 
  Country: None (occurrence: None)
  Receive Date: 20060509
  Receipt Date: 20041024
  Transmission Date: 20061013
  Serious: Yes (Other)
  Sender: FDA-Public Use
  Company Number: 2004243313US

PATIENT
  Age: 22 Year
  Sex: Female

DRUGS (1)
  1. DEPO-PROVERA [Suspect]
     Indication: ILL-DEFINED DISORDER
     Dosage: 150 MG (150 MG, 1ST INJECTION), INTRAMUSCULAR
     Route: 030
     Dates: start: 20041001, end: 20041001

REACTIONS (2)
  - DEPRESSION [None]
  - SUICIDAL IDEATION [None]
